FAERS Safety Report 4848432-1 (Version None)
Quarter: 2005Q4

REPORT INFORMATION
  Report Type: 
  Country: None (occurrence: None)
  Receive Date: 20051208
  Receipt Date: 20051116
  Transmission Date: 20060501
  Serious: Yes (Hospitalization)
  Sender: FDA-Public Use
  Company Number: JP-JPN-A20052786

PATIENT
  Age: 44 Year
  Sex: Female

DRUGS (17)
  1. PAXIL [Suspect]
     Indication: DEPRESSION
     Dosage: 40MG PER DAY
     Route: 048
     Dates: start: 20050127
  2. LULLAN [Suspect]
     Indication: DEPRESSION
     Dosage: 8MG TWICE PER DAY
     Route: 048
     Dates: start: 20051102, end: 20051111
  3. ZYPREXA [Suspect]
     Indication: DEPRESSION
     Dosage: 5MG PER DAY
     Route: 048
     Dates: start: 20050920, end: 20051117
  4. SEROQUEL [Concomitant]
     Route: 048
  5. SOLANAX [Concomitant]
     Indication: DEPRESSION
     Dosage: 2.4MG PER DAY
     Route: 048
     Dates: start: 20051008
  6. HALCION [Concomitant]
     Route: 048
  7. GASTER [Concomitant]
     Indication: GASTRIC ULCER
     Dosage: 40MG PER DAY
     Route: 048
     Dates: start: 20051003
  8. FERROMIA [Concomitant]
     Dosage: 100MG PER DAY
     Route: 048
     Dates: start: 20051003
  9. METLIGINE [Concomitant]
     Indication: HYPOTENSION
     Dosage: 4MG PER DAY
     Route: 048
     Dates: start: 20051012
  10. AKINETON [Concomitant]
     Indication: DEPRESSION
     Dosage: 3MG PER DAY
     Route: 048
     Dates: start: 20050824, end: 20051122
  11. DEPAS [Concomitant]
     Route: 048
  12. DORAL [Concomitant]
     Route: 048
  13. EURODIN [Concomitant]
     Route: 048
  14. GOSHA-JINKI-GAN [Concomitant]
     Route: 048
  15. ROHYPNOL [Concomitant]
     Indication: DEPRESSION
     Dosage: 2MG PER DAY
     Route: 048
     Dates: start: 20050623, end: 20051025
  16. CONTOMIN [Concomitant]
     Indication: DEPRESSION
     Route: 048
     Dates: start: 20050907, end: 20051101
  17. VITAMIN A [Concomitant]
     Indication: DEPRESSION
     Dosage: 1TAB PER DAY
     Route: 048
     Dates: start: 20050829, end: 20051101

REACTIONS (3)
  - DYSURIA [None]
  - NEUROGENIC BLADDER [None]
  - URINARY RETENTION [None]
